FAERS Safety Report 17027647 (Version 1)
Quarter: 2019Q4

REPORT INFORMATION
  Report Type: Spontaneous
  Country: US (occurrence: US)
  Receive Date: 20191010
  Receipt Date: 20191010
  Transmission Date: 20200122
  Serious: Yes (Hospitalization)
  Sender: FDA-Public Use
  Company Number: None

PATIENT
  Age: 39 Year
  Sex: Female

DRUGS (10)
  1. GABAPENTIN. [Concomitant]
     Active Substance: GABAPENTIN
  2. FOLIC ACID. [Concomitant]
     Active Substance: FOLIC ACID
  3. LISNOPRIL [Concomitant]
  4. TIZANIDINE. [Concomitant]
     Active Substance: TIZANIDINE
  5. BUDESONIDE. [Concomitant]
     Active Substance: BUDESONIDE
  6. METOPROLOL. [Concomitant]
     Active Substance: METOPROLOL
  7. HUMIRA [Suspect]
     Active Substance: ADALIMUMAB
     Indication: PSORIATIC ARTHROPATHY
     Route: 058
     Dates: start: 20180724
  8. ATORVASTATIN [Concomitant]
     Active Substance: ATORVASTATIN
  9. LEVEMIR [Concomitant]
     Active Substance: INSULIN DETEMIR
  10. METHOTREXATE. [Concomitant]
     Active Substance: METHOTREXATE

REACTIONS (2)
  - Pneumonia [None]
  - Product dose omission [None]

NARRATIVE: CASE EVENT DATE: 20190904
